FAERS Safety Report 23920824 (Version 1)
Quarter: 2024Q2

REPORT INFORMATION
  Report Type: Spontaneous
  Country: ES (occurrence: ES)
  Receive Date: 20240530
  Receipt Date: 20240530
  Transmission Date: 20240716
  Serious: Yes (Other)
  Sender: FDA-Public Use
  Company Number: ES-AVEO PHARMACEUTICALS, INC.-2024-AVEO-ES000428

PATIENT

DRUGS (4)
  1. FOTIVDA [Suspect]
     Active Substance: TIVOZANIB HYDROCHLORIDE
     Indication: Renal cell carcinoma
     Dosage: 1340 UG/24 HOURS 21 DAYS ON AND 7 DAYS OFF; UNKNOWN
     Route: 065
     Dates: start: 20210609, end: 20210806
  2. FOTIVDA [Suspect]
     Active Substance: TIVOZANIB HYDROCHLORIDE
     Dosage: 890 UG/24 HOURS 21 DAYS ON AND 7 DAYS OFF; UNKNOWN
     Route: 065
     Dates: start: 20210813
  3. FOTIVDA [Suspect]
     Active Substance: TIVOZANIB HYDROCHLORIDE
     Dosage: 890 UG/24 HOURS 21 DAYS ON AND 7 DAYS OFF; UNKNOWN
     Route: 065
     Dates: start: 20211022
  4. FOTIVDA [Suspect]
     Active Substance: TIVOZANIB HYDROCHLORIDE
     Dosage: 890 UG/24 HOURS 21 DAYS ON AND 7 DAYS OFF; UNKNOWN
     Route: 065
     Dates: start: 20230617

REACTIONS (9)
  - Diabetes mellitus [Unknown]
  - Fatigue [Unknown]
  - Diarrhoea [Not Recovered/Not Resolved]
  - Asthenia [Not Recovered/Not Resolved]
  - Blood thyroid stimulating hormone increased [Unknown]
  - Weight fluctuation [Recovering/Resolving]
  - Blood pressure fluctuation [Recovered/Resolved]
  - Headache [Unknown]
  - Disease progression [Unknown]

NARRATIVE: CASE EVENT DATE: 20210601
